FAERS Safety Report 18207489 (Version 1)
Quarter: 2020Q3

REPORT INFORMATION
  Report Type: Spontaneous
  Country: US (occurrence: US)
  Receive Date: 20200828
  Receipt Date: 20200828
  Transmission Date: 20201103
  Serious: No
  Sender: FDA-Public Use
  Company Number: None

PATIENT
  Age: 76 Year
  Sex: Male
  Weight: 96 kg

DRUGS (12)
  1. LIPITOR [Concomitant]
     Active Substance: ATORVASTATIN CALCIUM
  2. VITAMIN D [Concomitant]
     Active Substance: VITAMIN D NOS
  3. LOVENOX [Concomitant]
     Active Substance: ENOXAPARIN SODIUM
  4. VANCOMYCIN [Concomitant]
     Active Substance: VANCOMYCIN
  5. ZOSYN [Concomitant]
     Active Substance: PIPERACILLIN SODIUM\TAZOBACTAM SODIUM
  6. REMDESIVIR. [Suspect]
     Active Substance: REMDESIVIR
     Indication: COVID-19
     Dates: start: 20200819, end: 20200820
  7. AZITHROMYCIN ANHYDROUS. [Concomitant]
     Active Substance: AZITHROMYCIN ANHYDROUS
  8. METOPROLOL. [Concomitant]
     Active Substance: METOPROLOL
  9. ZINC. [Concomitant]
     Active Substance: ZINC
  10. ASPIRIN. [Concomitant]
     Active Substance: ASPIRIN
  11. FAMOTIDINE. [Concomitant]
     Active Substance: FAMOTIDINE
  12. METHYLPREDNISOLONE. [Concomitant]
     Active Substance: METHYLPREDNISOLONE

REACTIONS (2)
  - Therapy interrupted [None]
  - Liver function test increased [None]

NARRATIVE: CASE EVENT DATE: 20200820
